FAERS Safety Report 4824827-7 (Version None)
Quarter: 2005Q4

REPORT INFORMATION
  Report Type: 
  Country: None (occurrence: None)
  Receive Date: 20051014
  Receipt Date: 20050627
  Transmission Date: 20060501
  Serious: No
  Sender: FDA-Public Use
  Company Number: 2005SP001624

PATIENT
  Age: 59 Year
  Sex: Male
  Weight: 77.1115 kg

DRUGS (6)
  1. LUNESTA [Suspect]
     Indication: INSOMNIA
     Dosage: 2 MG;ORAL, 3 MG;ORAL
     Route: 048
     Dates: start: 20050621, end: 20050601
  2. LUNESTA [Suspect]
     Indication: INSOMNIA
     Dosage: 2 MG;ORAL, 3 MG;ORAL
     Route: 048
     Dates: start: 20050623
  3. AMBIEN [Concomitant]
  4. ZYPREXA [Concomitant]
  5. REMERON [Concomitant]
  6. KLONOPIN [Concomitant]

REACTIONS (2)
  - DRUG INEFFECTIVE [None]
  - INSOMNIA [None]
